FAERS Safety Report 7473137-0 (Version None)
Quarter: 2011Q2

REPORT INFORMATION
  Report Type: 
  Country: None (occurrence: None)
  Receive Date: 20110511
  Receipt Date: 20110215
  Transmission Date: 20111010
  Serious: Yes (Other)
  Sender: FDA-Public Use
  Company Number: PHHY2011AU14852

PATIENT
  Age: 80 Year
  Sex: Female

DRUGS (3)
  1. METOPROLOL SUCCINATE [Suspect]
     Dosage: 50 MG
     Route: 048
  2. METOPROLOL SUCCINATE [Suspect]
     Dosage: 100 MG
     Route: 048
  3. RANITIDINE HCL [Suspect]
     Dosage: 300 MG, BID
     Route: 048

REACTIONS (3)
  - PULMONARY HYPERTENSION [None]
  - ABDOMINAL DISCOMFORT [None]
  - FATIGUE [None]
